FAERS Safety Report 10803969 (Version 1)
Quarter: 2015Q1

REPORT INFORMATION
  Report Type: Spontaneous
  Country: US (occurrence: US)
  Receive Date: 20150217
  Receipt Date: 20150217
  Transmission Date: 20150721
  Serious: No
  Sender: FDA-Public Use
  Company Number: US-009507513-1502USA004292

PATIENT
  Age: 33 Year
  Sex: Female
  Weight: 72.56 kg

DRUGS (1)
  1. NEXPLANON [Suspect]
     Active Substance: ETONOGESTREL
     Indication: CONTRACEPTION
     Dosage: 1 SINGLE PREFILLED ROD 68MG ETONOGESTREL
     Route: 059
     Dates: start: 20140924, end: 20150209

REACTIONS (2)
  - Malaise [Unknown]
  - Unintended pregnancy [Not Recovered/Not Resolved]
